FAERS Safety Report 16151438 (Version 1)
Quarter: 2019Q2

REPORT INFORMATION
  Report Type: Spontaneous
  Country: US (occurrence: US)
  Receive Date: 20190403
  Receipt Date: 20190403
  Transmission Date: 20190711
  Serious: No
  Sender: FDA-Public Use
  Company Number: US-UPSHER-SMITH LABORATORIES, LLC-2018USL00370

PATIENT
  Sex: Male
  Weight: 68.03 kg

DRUGS (3)
  1. UNSPECIFIED ^ALTERNATIVE^ VITAMINS [Concomitant]
  2. PREVALITE [Suspect]
     Active Substance: CHOLESTYRAMINE
     Indication: FREQUENT BOWEL MOVEMENTS
     Dosage: 3 DOSAGE UNITS, 1X/DAY
     Route: 048
     Dates: start: 2017, end: 201802
  3. PREVALITE [Suspect]
     Active Substance: CHOLESTYRAMINE
     Dosage: 1 DOSAGE UNITS, 1X/DAY
     Route: 048
     Dates: start: 201802

REACTIONS (1)
  - Cough [Not Recovered/Not Resolved]

NARRATIVE: CASE EVENT DATE: 2017
